FAERS Safety Report 12687665 (Version 1)
Quarter: 2016Q3

REPORT INFORMATION
  Report Type: Spontaneous
  Country: US (occurrence: US)
  Receive Date: 20160826
  Receipt Date: 20160826
  Transmission Date: 20161109
  Serious: No
  Sender: FDA-Public Use
  Company Number: US-ASTRAZENECA-2016SE85424

PATIENT
  Sex: Female

DRUGS (1)
  1. BYDUREON [Suspect]
     Active Substance: EXENATIDE
     Indication: TYPE 2 DIABETES MELLITUS
     Dosage: 2 MG,ONCE A WEEK
     Route: 058
     Dates: start: 2016

REACTIONS (3)
  - Epistaxis [Recovered/Resolved]
  - Hot flush [Recovering/Resolving]
  - Diarrhoea [Recovered/Resolved]
